FAERS Safety Report 17629730 (Version 1)
Quarter: 2020Q2

REPORT INFORMATION
  Report Type: Spontaneous
  Country: US (occurrence: US)
  Receive Date: 20200403
  Receipt Date: 20200403
  Transmission Date: 20200713
  Serious: No
  Sender: FDA-Public Use
  Company Number: None

PATIENT
  Age: 62 Year
  Sex: Female

DRUGS (1)
  1. COPAXONE [Suspect]
     Active Substance: GLATIRAMER ACETATE
     Dosage: OTHER
     Route: 058
     Dates: start: 20200403

REACTIONS (5)
  - Dysuria [None]
  - Product substitution issue [None]
  - Fatigue [None]
  - Anxiety [None]
  - Injection site urticaria [None]

NARRATIVE: CASE EVENT DATE: 20200403
